FAERS Safety Report 6963059-3 (Version None)
Quarter: 2010Q3

REPORT INFORMATION
  Report Type: 
  Country: None (occurrence: None)
  Receive Date: 20100902
  Receipt Date: 20100824
  Transmission Date: 20110219
  Serious: Yes (Hospitalization)
  Sender: FDA-Public Use
  Company Number: US-ELI_LILLY_AND_COMPANY-US201009000108

PATIENT

DRUGS (7)
  1. GEMZAR [Suspect]
     Indication: ADENOCARCINOMA PANCREAS
     Dosage: 4000 MG/M2, OTHER
  2. GEMZAR [Suspect]
     Dosage: 50 MG/M2, OTHER
  3. DOCETAXEL [Concomitant]
     Dosage: 65 MG/M2, UNK
  4. DEXAMETHASONE [Concomitant]
     Dosage: 10 MG, UNK
  5. DEXAMETHASONE [Concomitant]
     Dosage: 20 MG/KG, UNK
  6. OTHER ANTIEMETICS [Concomitant]
  7. THERAPEUTIC RADIOPHARMACEUTICALS [Concomitant]

REACTIONS (1)
  - GASTROINTESTINAL DISORDER [None]
